FAERS Safety Report 10703283 (Version 4)
Quarter: 2015Q1

REPORT INFORMATION
  Report Type: Report from Study
  Country: GB (occurrence: GB)
  Receive Date: 20150112
  Receipt Date: 20150128
  Transmission Date: 20150721
  Serious: Yes (Hospitalization)
  Sender: FDA-Public Use
  Company Number: GB-ROCHE-1518278

PATIENT
  Age: 77 Year
  Sex: Male
  Weight: 66.4 kg

DRUGS (5)
  1. DEXAMETHASONE (ORAL) [Concomitant]
     Route: 048
     Dates: start: 20141023
  2. LANSOPRAZOLE. [Concomitant]
     Active Substance: LANSOPRAZOLE
     Route: 048
     Dates: start: 20141023
  3. ENOXAPARIN [Concomitant]
     Active Substance: ENOXAPARIN
     Route: 058
     Dates: start: 20141023
  4. BEVACIZUMAB [Suspect]
     Active Substance: BEVACIZUMAB
     Indication: COLORECTAL CANCER METASTATIC
     Dosage: 05/DEC/2014, LAST DOSE PRIOR TO SAE
     Route: 042
     Dates: start: 20141003
  5. CAPECITABINE. [Suspect]
     Active Substance: CAPECITABINE
     Indication: COLORECTAL CANCER METASTATIC
     Dosage: 2000MG 2/52 3-WEEKLY
     Route: 065
     Dates: start: 20141003, end: 20141219

REACTIONS (3)
  - Atrial fibrillation [Not Recovered/Not Resolved]
  - Non-cardiac chest pain [Not Recovered/Not Resolved]
  - Lower respiratory tract infection [Not Recovered/Not Resolved]

NARRATIVE: CASE EVENT DATE: 20150102
